FAERS Safety Report 12372489 (Version 1)
Quarter: 2016Q2

REPORT INFORMATION
  Report Type: Spontaneous
  Country: None (occurrence: US)
  Receive Date: 20160516
  Receipt Date: 20160516
  Transmission Date: 20160815
  Serious: No
  Sender: FDA-Public Use
  Company Number: US-MERZ NORTH AMERICA, INC.-16MRZ-00291

PATIENT
  Sex: Female

DRUGS (1)
  1. XEOMIN [Suspect]
     Active Substance: INCOBOTULINUMTOXINA
     Indication: PRODUCT USED FOR UNKNOWN INDICATION
     Dosage: 6 UNITS TO LEFT CROW^S FEET?2 UNITS TO RIGHT CROW^S FEET?4 UNITS TO EACH LATERAL BROW

REACTIONS (3)
  - Discomfort [None]
  - Pain [None]
  - Dry eye [None]
